FAERS Safety Report 4729863-7 (Version None)
Quarter: 2005Q3

REPORT INFORMATION
  Report Type: 
  Country: None (occurrence: None)
  Receive Date: 20050728
  Receipt Date: 20050519
  Transmission Date: 20060218
  Serious: Yes (Hospitalization)
  Sender: FDA-Public Use
  Company Number: URSO 2005-005

PATIENT
  Age: 72 Year

DRUGS (4)
  1. URSODIOL [Suspect]
     Indication: BILIARY CIRRHOSIS PRIMARY
     Dosage: 600 MG
     Route: 048
  2. AZEPTIN (AZELASTINE HYDROCHLORIDE) [Concomitant]
  3. PLETAL [Concomitant]
  4. GASMOTIN (MOSAPRIDE CITRATE) [Concomitant]

REACTIONS (3)
  - COUGH [None]
  - INTERSTITIAL LUNG DISEASE [None]
  - PYREXIA [None]
